FAERS Safety Report 4679908-8 (Version None)
Quarter: 2005Q2

REPORT INFORMATION
  Report Type: 
  Country: None (occurrence: None)
  Receive Date: 20050602
  Receipt Date: 20050523
  Transmission Date: 20051028
  Serious: Yes (Other)
  Sender: FDA-Public Use
  Company Number: GB-GLAXOSMITHKLINE-B0382486A

PATIENT
  Sex: Female

DRUGS (1)
  1. NIQUITIN PATCH [Suspect]
     Indication: SMOKING CESSATION THERAPY
     Route: 062

REACTIONS (4)
  - CONVULSION [None]
  - EPILEPSY [None]
  - INSOMNIA [None]
  - NIGHTMARE [None]
